FAERS Safety Report 5160868-0 (Version None)
Quarter: 2006Q4

REPORT INFORMATION
  Report Type: 
  Country: None (occurrence: None)
  Receive Date: 20061130
  Receipt Date: 20061120
  Transmission Date: 20070319
  Serious: Yes (Other)
  Sender: FDA-Public Use
  Company Number: 2006UW25731

PATIENT
  Age: 35 Year
  Sex: Male
  Weight: 77.1 kg

DRUGS (5)
  1. SEROQUEL [Suspect]
     Indication: DEPRESSION
     Route: 048
  2. SEROQUEL [Suspect]
     Indication: ANXIETY
     Route: 048
  3. SEROQUEL [Suspect]
     Indication: PANIC ATTACK
     Route: 048
  4. WELLBUTRIN [Concomitant]
  5. HYDROXYZINE [Concomitant]

REACTIONS (2)
  - HYPERSENSITIVITY [None]
  - VISUAL DISTURBANCE [None]
